FAERS Safety Report 23830723 (Version 2)
Quarter: 2024Q2

REPORT INFORMATION
  Report Type: Spontaneous
  Country: US (occurrence: US)
  Receive Date: 20240508
  Receipt Date: 20240509
  Transmission Date: 20240716
  Serious: Yes (Hospitalization, Other)
  Sender: FDA-Public Use
  Company Number: None

PATIENT
  Age: 36 Year
  Sex: Male

DRUGS (1)
  1. DOXYCYCLINE HYCLATE [Suspect]
     Active Substance: DOXYCYCLINE HYCLATE
     Indication: Malaria prophylaxis
     Dosage: 1 G, DAILY
     Route: 048
     Dates: start: 1984, end: 1997

REACTIONS (10)
  - Anaemia [Recovered/Resolved]
  - Atrioventricular block second degree [Not Recovered/Not Resolved]
  - Cholestasis [Not Recovered/Not Resolved]
  - Hepatic necrosis [Not Recovered/Not Resolved]
  - Leukopenia [Recovered/Resolved]
  - Nephropathy [Recovered/Resolved]
  - Overdose [Unknown]
  - Skin hyperpigmentation [Not Recovered/Not Resolved]
  - Supraventricular tachycardia [Not Recovered/Not Resolved]
  - Suicide attempt [Recovered/Resolved]
